FAERS Safety Report 12245769 (Version 1)
Quarter: 2016Q2

REPORT INFORMATION
  Report Type: Spontaneous
  Country: US (occurrence: US)
  Receive Date: 20160407
  Receipt Date: 20160407
  Transmission Date: 20160815
  Serious: No
  Sender: FDA-Public Use
  Company Number: US-ASTRAZENECA-2016SE28686

PATIENT
  Sex: Male

DRUGS (3)
  1. BYDUREON [Suspect]
     Active Substance: EXENATIDE
     Dosage: ONCE A WEEK, KIT
     Route: 058
     Dates: start: 201509, end: 201512
  2. BYDUREON [Suspect]
     Active Substance: EXENATIDE
     Dosage: 2 DF, ONCE A WEEK (DUAL CHAMBER PEN)
     Route: 058
     Dates: start: 201502
  3. ASPIRIN. [Concomitant]
     Active Substance: ASPIRIN
     Dosage: HALF OF A 325 MG ASPIRIN DAILY

REACTIONS (3)
  - Injection site bruising [Unknown]
  - Injection site haematoma [Recovered/Resolved]
  - Product quality issue [Unknown]

NARRATIVE: CASE EVENT DATE: 201509
